FAERS Safety Report 6133540-8 (Version None)
Quarter: 2009Q1

REPORT INFORMATION
  Report Type: 
  Country: None (occurrence: None)
  Receive Date: 20090326
  Receipt Date: 20090319
  Transmission Date: 20090719
  Serious: Yes (Other)
  Sender: FDA-Public Use
  Company Number: US-AVENTIS-200911567US

PATIENT
  Sex: Female

DRUGS (2)
  1. NASACORT AQ [Suspect]
     Dosage: DOSE: 1 SPRAY
     Dates: start: 20090201, end: 20090201
  2. NASACORT AQ [Suspect]
     Dosage: DOSE: 1 SPRAY
     Dates: start: 20090201, end: 20090201

REACTIONS (3)
  - EYE HAEMORRHAGE [None]
  - EYE SWELLING [None]
  - PARAESTHESIA [None]
